FAERS Safety Report 14923394 (Version 1)
Quarter: 2018Q2

REPORT INFORMATION
  Report Type: Spontaneous
  Country: IN (occurrence: IN)
  Receive Date: 20180522
  Receipt Date: 20180522
  Transmission Date: 20180711
  Serious: Yes (Death, Life-Threatening, Hospitalization, Other)
  Sender: FDA-Public Use
  Company Number: IN-GLENMARK PHARMACEUTICALS-2018GMK035447

PATIENT
  Age: 1 Day
  Sex: Female
  Weight: 1.8 kg

DRUGS (1)
  1. BETAMETHASONE DIPROPIONATE. [Suspect]
     Active Substance: BETAMETHASONE DIPROPIONATE
     Indication: FOETAL GROWTH RESTRICTION
     Dosage: UNK
     Route: 064

REACTIONS (2)
  - Tumour lysis syndrome [Fatal]
  - Foetal exposure during pregnancy [Unknown]
